FAERS Safety Report 13165794 (Version 3)
Quarter: 2017Q2

REPORT INFORMATION
  Report Type: Report from Study
  Country: US (occurrence: US)
  Receive Date: 20170131
  Receipt Date: 20170413
  Transmission Date: 20170830
  Serious: Yes (Hospitalization, Other)
  Sender: FDA-Public Use
  Company Number: US-GILEAD-2017-0255089

PATIENT
  Age: 60 Year
  Sex: Female

DRUGS (9)
  1. VITAMIN D [Concomitant]
     Active Substance: CHOLECALCIFEROL
  2. AMBRISENTAN [Suspect]
     Active Substance: AMBRISENTAN
     Indication: PULMONARY HYPERTENSION
     Dosage: 10 MG, QD
     Route: 065
     Dates: start: 20161021
  3. TORSEMIDE. [Concomitant]
     Active Substance: TORSEMIDE
  4. LISINOPRIL. [Concomitant]
     Active Substance: LISINOPRIL
  5. ASPIRIN                            /00002701/ [Concomitant]
     Active Substance: ASPIRIN
  6. FISH OIL [Concomitant]
     Active Substance: FISH OIL
  7. SIMVASTATIN. [Concomitant]
     Active Substance: SIMVASTATIN
  8. SILDENAFIL. [Suspect]
     Active Substance: SILDENAFIL
     Indication: PRODUCT USED FOR UNKNOWN INDICATION
     Route: 065
  9. CALCIUM [Concomitant]
     Active Substance: CALCIUM

REACTIONS (2)
  - Atrial fibrillation [Unknown]
  - Pneumonia [Unknown]

NARRATIVE: CASE EVENT DATE: 20170121
